FAERS Safety Report 8910638 (Version 1)
Quarter: 2012Q4

REPORT INFORMATION
  Report Type: Spontaneous
  Country: IN (occurrence: None)
  Receive Date: 20121108
  Receipt Date: 20121108
  Transmission Date: 20130627
  Serious: Yes (Hospitalization)
  Sender: FDA-Public Use
  Company Number: LEVO20120001

PATIENT
  Age: 32 Year
  Sex: Female

DRUGS (1)
  1. LEVOTHYROXINE [Suspect]
     Indication: DRUG ABUSE
     Dosage: 0.1 mg,  1 in 1 D,  Oral
     Route: 048
     Dates: start: 2012, end: 2012

REACTIONS (4)
  - Drug abuse [None]
  - Hypokalaemia [None]
  - Blood creatine phosphokinase increased [None]
  - Thyrotoxic periodic paralysis [None]
